FAERS Safety Report 24154450 (Version 1)
Quarter: 2024Q3

REPORT INFORMATION
  Report Type: Report from Study
  Country: BE (occurrence: BE)
  Receive Date: 20240731
  Receipt Date: 20240731
  Transmission Date: 20241016
  Serious: Yes (Other)
  Sender: ABBVIE
  Company Number: BE-ABBVIE-5853824

PATIENT
  Sex: Male
  Weight: 70 kg

DRUGS (15)
  1. CARBIDOPA\LEVODOPA [Suspect]
     Active Substance: CARBIDOPA\LEVODOPA
     Indication: Parkinson^s disease
     Route: 050
  2. CARBIDOPA\LEVODOPA [Suspect]
     Active Substance: CARBIDOPA\LEVODOPA
     Dosage: MD: 4.0ML, CD: 4.3 ML/H, ED: 3.50ML DURING 24 HOURS
     Route: 050
     Dates: start: 20240312
  3. CARBIDOPA\LEVODOPA [Suspect]
     Active Substance: CARBIDOPA\LEVODOPA
     Dosage: MD: 4.0ML, CD: 4.3 ML/H, ED: 2.50ML DURING 24 HOURS
     Route: 050
     Dates: start: 20231016, end: 20240312
  4. LORMETAZEPAM [Concomitant]
     Active Substance: LORMETAZEPAM
     Indication: Product used for unknown indication
     Dosage: FREQUENCY TEXT: AT 21 H
  5. XARELTO [Concomitant]
     Active Substance: RIVAROXABAN
     Indication: Product used for unknown indication
  6. Altorvastatin [Concomitant]
     Indication: Product used for unknown indication
     Dosage: FORM STRENGTH: 20 FORM STRENGTH UNITS: UNKNOWN
  7. BENSERAZIDE\LEVODOPA [Concomitant]
     Active Substance: BENSERAZIDE\LEVODOPA
     Indication: Product used for unknown indication
     Dosage: FORM STRENGTH: 250 FORM STRENGTH UNITS: MILLIGRAM FREQUENCY TEXT: 5 TO 7 TABLET PER DAY
  8. XADAGO [Concomitant]
     Active Substance: SAFINAMIDE MESYLATE
     Indication: Product used for unknown indication
     Dosage: FORM STRENGTH: 100 FORM STRENGTH UNITS: MILLIGRAM  FREQUENCY TEXT: AT 8 H
  9. CLOZAPINE [Concomitant]
     Active Substance: CLOZAPINE
     Indication: Product used for unknown indication
     Dosage: FREQUENCY TEXT: AT 21H + 1/4 TABLET OVERNIGHT IF NEEDED
  10. ESCITALOPRAM OXALATE [Concomitant]
     Active Substance: ESCITALOPRAM OXALATE
     Indication: Product used for unknown indication
     Dosage: FREQUENCY TEXT: AT 9H
  11. FUROSEMIDE [Concomitant]
     Active Substance: FUROSEMIDE
     Indication: Product used for unknown indication
     Dosage: FORM STRENGTH: 40 FORM STRENGTH UNITS: UNKNOWN
  12. DAFALGAN [Concomitant]
     Active Substance: ACETAMINOPHEN
     Indication: Product used for unknown indication
  13. PRAMIPEXOLE [Concomitant]
     Active Substance: PRAMIPEXOLE\PRAMIPEXOLE DIHYDROCHLORIDE
     Indication: Product used for unknown indication
     Dosage: FORM STRENGTH: 3.15  FORM STRENGTH UNITS: MILLIGRAM  FREQUENCY TEXT: AT 8 H
  14. CYANOCOBALAMIN\FOLIC ACID\PYRIDOXINE HYDROCHLORIDE [Concomitant]
     Active Substance: CYANOCOBALAMIN\FOLIC ACID\PYRIDOXINE HYDROCHLORIDE
     Indication: Product used for unknown indication
  15. TRAZODONE [Concomitant]
     Active Substance: TRAZODONE HYDROCHLORIDE
     Indication: Product used for unknown indication

REACTIONS (4)
  - Palliative care [Unknown]
  - Affective disorder [Unknown]
  - Device dislocation [Not Recovered/Not Resolved]
  - Off label use [Unknown]
